FAERS Safety Report 9361235 (Version 2)
Quarter: 2014Q2

REPORT INFORMATION
  Report Type: Spontaneous
  Country: US (occurrence: US)
  Receive Date: 20130621
  Receipt Date: 20140605
  Transmission Date: 20141212
  Serious: Yes (Death, Hospitalization)
  Sender: FDA-Public Use
  Company Number: US-BRISTOL-MYERS SQUIBB COMPANY-19022193

PATIENT
  Age: 66 Year
  Sex: Female

DRUGS (8)
  1. BYETTA [Suspect]
     Indication: TYPE 2 DIABETES MELLITUS
     Dosage: BYETTA 10MCG PEN INJ-NDC:66780021008.?BYETTA 5MCG PEN INJ-NDC:66780021007.
     Dates: start: 200906
  2. BACTRIM DS [Concomitant]
     Indication: INFECTION
     Dosage: 1DF= 800-160MG.TABLET
     Route: 048
     Dates: start: 20100706
  3. FLAGYL [Concomitant]
     Indication: INFECTION
     Dosage: TABLET
     Route: 048
     Dates: start: 20100706
  4. HYDROXYZINE HCL [Concomitant]
     Indication: PRURITUS
     Route: 048
     Dates: start: 20100628
  5. LINEZOLID [Concomitant]
     Indication: INFECTION
     Route: 048
     Dates: start: 20100706
  6. METFORMIN [Concomitant]
     Indication: DIABETES MELLITUS
     Dosage: TABLET
     Route: 048
     Dates: start: 20100706
  7. METHOCARBAMOL [Concomitant]
     Indication: PAIN
     Dosage: TAB
     Route: 048
     Dates: start: 20100630
  8. VICODIN ES [Concomitant]
     Indication: PAIN
     Route: 048
     Dates: start: 20100706

REACTIONS (1)
  - Pancreatic carcinoma [Fatal]
